FAERS Safety Report 7340612-9 (Version None)
Quarter: 2011Q1

REPORT INFORMATION
  Report Type: 
  Country: None (occurrence: None)
  Receive Date: 20110309
  Receipt Date: 20110228
  Transmission Date: 20110831
  Serious: Yes (Hospitalization)
  Sender: FDA-Public Use
  Company Number: SE-JNJFOC-20110200997

PATIENT
  Age: 37 Year
  Sex: Female

DRUGS (3)
  1. REMICADE [Suspect]
     Indication: SPONDYLITIS
     Route: 042
  2. ROACTEMRA [Suspect]
     Indication: SPONDYLITIS
     Route: 042
  3. METHOTREXATE [Concomitant]

REACTIONS (6)
  - PERITONITIS [None]
  - DISEASE RECURRENCE [None]
  - DRUG INEFFECTIVE [None]
  - SYNOVITIS [None]
  - ABSCESS [None]
  - ABDOMINAL PAIN [None]
